FAERS Safety Report 6782795-5 (Version None)
Quarter: 2010Q2

REPORT INFORMATION
  Report Type: 
  Country: None (occurrence: None)
  Receive Date: 20100616
  Receipt Date: 20100607
  Transmission Date: 20101027
  Serious: Yes (Hospitalization)
  Sender: FDA-Public Use
  Company Number: 2010AL003334

PATIENT
  Age: 66 Year
  Sex: Female

DRUGS (2)
  1. FLUOXETINE [Suspect]
     Dosage: 20 MG;QD
  2. MIRTAZAPINE [Suspect]
     Dosage: 30 MG;QD

REACTIONS (17)
  - ABNORMAL BEHAVIOUR [None]
  - AFFECTIVE DISORDER [None]
  - AGGRESSION [None]
  - AGITATION [None]
  - BLOOD CREATININE INCREASED [None]
  - BLOOD UREA INCREASED [None]
  - CONDITION AGGRAVATED [None]
  - DELUSION OF GRANDEUR [None]
  - DEPRESSION [None]
  - DIET REFUSAL [None]
  - DYSPHORIA [None]
  - FRUSTRATION [None]
  - GLYCOSYLATED HAEMOGLOBIN INCREASED [None]
  - IRRITABILITY [None]
  - MANIA [None]
  - SELF ESTEEM INFLATED [None]
  - SLEEP DISORDER [None]
